FAERS Safety Report 9345656 (Version 1)
Quarter: 2013Q2

REPORT INFORMATION
  Report Type: Spontaneous
  Country: US (occurrence: US)
  Receive Date: 20130613
  Receipt Date: 20130613
  Transmission Date: 20140414
  Serious: No
  Sender: FDA-Public Use
  Company Number: US-FOUGERA-2012FO001099

PATIENT
  Sex: Female

DRUGS (4)
  1. TRIAMCINOLONE ACETONIDE [Suspect]
     Indication: DERMATITIS ALLERGIC
     Route: 061
     Dates: start: 20120508
  2. TRIAMCINOLONE ACETONIDE [Suspect]
     Indication: VASCULAR GRAFT COMPLICATION
  3. HYDROCORTISONE [Suspect]
     Indication: RASH
  4. PENICILLIN [Suspect]
     Indication: SKIN INFECTION
     Route: 048
     Dates: start: 20120508

REACTIONS (9)
  - Skin exfoliation [Not Recovered/Not Resolved]
  - Pruritus [Not Recovered/Not Resolved]
  - Erythema [Not Recovered/Not Resolved]
  - Nausea [Not Recovered/Not Resolved]
  - Headache [Not Recovered/Not Resolved]
  - Diarrhoea [Not Recovered/Not Resolved]
  - Rash [Not Recovered/Not Resolved]
  - Hypersensitivity [Not Recovered/Not Resolved]
  - Skin infection [Not Recovered/Not Resolved]
